FAERS Safety Report 14361107 (Version 1)
Quarter: 2018Q1

REPORT INFORMATION
  Report Type: Spontaneous
  Country: JP (occurrence: JP)
  Receive Date: 20180107
  Receipt Date: 20180107
  Transmission Date: 20180509
  Serious: Yes (Death)
  Sender: FDA-Public Use
  Company Number: JP-BAXTER-2017BAX046077

PATIENT
  Age: 83 Year
  Sex: Male

DRUGS (8)
  1. PINORUBIN [Suspect]
     Active Substance: PIRARUBICIN
     Indication: LYMPHOMA
     Dosage: FIRST COURSE OF CHOP THERAPY
     Route: 065
     Dates: start: 20171106
  2. PREDONINE [Suspect]
     Active Substance: PREDNISOLONE
     Indication: LYMPHOMA
     Dosage: FIRST COURSE OF CHOP THERAPY
     Route: 065
     Dates: start: 20171106
  3. ENDOXAN 1G [Suspect]
     Active Substance: CYCLOPHOSPHAMIDE
     Indication: LYMPHOMA
     Dosage: FIRST COURSE OF CHOP THERAPY
     Route: 041
     Dates: start: 20171106
  4. ONCOVIN [Suspect]
     Active Substance: VINCRISTINE SULFATE
     Dosage: SECOND COURSE OF CHOP THERAPY
     Route: 065
     Dates: start: 20171127
  5. PINORUBIN [Suspect]
     Active Substance: PIRARUBICIN
     Dosage: SECOND COURSE OF CHOP THERAPY
     Route: 065
     Dates: start: 20171127
  6. ONCOVIN [Suspect]
     Active Substance: VINCRISTINE SULFATE
     Indication: LYMPHOMA
     Dosage: FIRST COURSE OF CHOP THERAPY
     Route: 065
     Dates: start: 20171106
  7. ENDOXAN 1G [Suspect]
     Active Substance: CYCLOPHOSPHAMIDE
     Dosage: SECOND COURSE OF CHOP THERAPY
     Route: 041
     Dates: start: 20171127
  8. PREDONINE [Suspect]
     Active Substance: PREDNISOLONE
     Dosage: SECOND COURSE OF CHOP THERAPY
     Route: 065
     Dates: start: 20171127

REACTIONS (1)
  - Interstitial lung disease [Fatal]
